FAERS Safety Report 9737163 (Version 2)
Quarter: 2014Q1

REPORT INFORMATION
  Report Type: Report from Study
  Country: US (occurrence: US)
  Receive Date: 20131206
  Receipt Date: 20140222
  Transmission Date: 20141002
  Serious: Yes (Hospitalization)
  Sender: FDA-Public Use
  Company Number: US-ROCHE-1312762

PATIENT
  Age: 94 Year
  Sex: Male

DRUGS (2)
  1. LUCENTIS [Suspect]
     Indication: MACULAR DEGENERATION
     Route: 050
     Dates: start: 2012
  2. LUCENTIS [Suspect]
     Dosage: LEFT EYE
     Route: 050

REACTIONS (7)
  - Heart rate decreased [Unknown]
  - Pneumothorax [Unknown]
  - Chest tube insertion [Recovered/Resolved]
  - Abasia [Recovered/Resolved]
  - Asthenia [Unknown]
  - Cardiac pacemaker insertion [Unknown]
  - Visual acuity reduced [Unknown]
